FAERS Safety Report 5275710-7 (Version None)
Quarter: 2007Q1

REPORT INFORMATION
  Report Type: 
  Country: None (occurrence: None)
  Receive Date: 20061213
  Receipt Date: 20040114
  Transmission Date: 20070707
  Serious: No
  Sender: FDA-Public Use
  Company Number: 2004UW06154

PATIENT
  Sex: Male

DRUGS (9)
  1. SEROQUEL [Suspect]
  2. DIPHENHYDRAMINE HCL [Suspect]
  3. ACETAMINOPHEN [Concomitant]
  4. FOLIC ACID [Concomitant]
  5. IBUPROFEN [Concomitant]
  6. M.V.I. [Concomitant]
  7. OLANZAPINE [Concomitant]
  8. SERTRALINE HYDROCHLORIDE [Concomitant]
  9. THIAMINE [Concomitant]

REACTIONS (7)
  - CONJUNCTIVAL HYPERAEMIA [None]
  - HYPOTENSION [None]
  - HYPOTHERMIA [None]
  - MIOSIS [None]
  - OVERDOSE [None]
  - RESPIRATORY RATE DECREASED [None]
  - SOMNOLENCE [None]
